FAERS Safety Report 24968348 (Version 1)
Quarter: 2025Q1

REPORT INFORMATION
  Report Type: Spontaneous
  Country: US (occurrence: US)
  Receive Date: 20250214
  Receipt Date: 20250214
  Transmission Date: 20250408
  Serious: No
  Sender: ALEXION PHARMACEUTICALS
  Company Number: US-AstraZeneca-2024-294709

PATIENT
  Age: 73 Year

DRUGS (1)
  1. LYNPARZA [Suspect]
     Active Substance: OLAPARIB

REACTIONS (7)
  - Gastric dilatation [Unknown]
  - Arthralgia [Unknown]
  - Back pain [Unknown]
  - Gait disturbance [Unknown]
  - Pain [Unknown]
  - Weight increased [Unknown]
  - Inflammation [Unknown]
